FAERS Safety Report 25971163 (Version 1)
Quarter: 2025Q4

REPORT INFORMATION
  Report Type: Spontaneous
  Country: NZ (occurrence: NZ)
  Receive Date: 20251028
  Receipt Date: 20251028
  Transmission Date: 20260118
  Serious: Yes (Hospitalization, Other)
  Sender: NOVO NORDISK
  Company Number: NZ-NOVOPROD-1544377

PATIENT
  Age: 59 Year
  Sex: Female

DRUGS (8)
  1. WEGOVY [Suspect]
     Active Substance: SEMAGLUTIDE
     Indication: Weight control
     Dosage: 0.5 MG, QW
     Dates: start: 20250910, end: 20250916
  2. MVITE [Concomitant]
     Dosage: UNK
  3. ATORVASTATIN [Concomitant]
     Active Substance: ATORVASTATIN
     Dosage: 20 MG, QD
  4. CELECOXIB [Concomitant]
     Active Substance: CELECOXIB
     Dosage: UNK
  5. ESTRIOL [Concomitant]
     Active Substance: ESTRIOL
     Dosage: UNK
  6. OMEPRAZOLE [Concomitant]
     Active Substance: OMEPRAZOLE
     Dosage: 10 MG, QD
  7. OXYBUTYNIN [Concomitant]
     Active Substance: OXYBUTYNIN
     Dosage: 5 MG, QD
  8. ACETAMINOPHEN [Concomitant]
     Active Substance: ACETAMINOPHEN
     Dosage: 1000 MG, QID

REACTIONS (11)
  - Acute psychosis [Recovering/Resolving]
  - Abnormal behaviour [Recovering/Resolving]
  - Emotional disorder [Recovering/Resolving]
  - Flight of ideas [Recovering/Resolving]
  - Logorrhoea [Recovering/Resolving]
  - Loose associations [Recovering/Resolving]
  - Mental impairment [Recovering/Resolving]
  - Paranoia [Recovering/Resolving]
  - Poor quality sleep [Recovering/Resolving]
  - Therapy change [Recovering/Resolving]
  - Product use issue [Unknown]

NARRATIVE: CASE EVENT DATE: 20250901
